FAERS Safety Report 5140154-5 (Version None)
Quarter: 2006Q4

REPORT INFORMATION
  Report Type: 
  Country: None (occurrence: None)
  Receive Date: 20061031
  Receipt Date: 20061019
  Transmission Date: 20070319
  Serious: Yes (Death)
  Sender: FDA-Public Use
  Company Number: MX-ROCHE-468173

PATIENT
  Age: 35 Year
  Sex: Female

DRUGS (2)
  1. KETOROLAC TROMETHAMINE [Suspect]
     Dosage: DOSAGE REGIMEN REPORTED AS 'SINGLE'
     Route: 065
     Dates: start: 20040615, end: 20040615
  2. DIPYRONE TAB [Suspect]
     Dosage: DOSAGE REGIMEN REPORTED AS 'SINGLE'
     Route: 065
     Dates: start: 20040615, end: 20040615

REACTIONS (8)
  - ASPHYXIA [None]
  - CARDIO-RESPIRATORY ARREST [None]
  - CEREBRAL HAEMORRHAGE [None]
  - HAEMORRHAGE [None]
  - HEPATIC HAEMORRHAGE [None]
  - INTUBATION COMPLICATION [None]
  - ORTHOSTATIC HYPOTENSION [None]
  - RENAL HAEMORRHAGE [None]
